FAERS Safety Report 18221909 (Version 1)
Quarter: 2020Q3

REPORT INFORMATION
  Report Type: Spontaneous
  Country: US (occurrence: US)
  Receive Date: 20200902
  Receipt Date: 20200902
  Transmission Date: 20201103
  Serious: Yes (Death)
  Sender: FDA-Public Use
  Company Number: None

PATIENT
  Age: 65 Year
  Sex: Male
  Weight: 103 kg

DRUGS (1)
  1. REMDESIVIR (EUA) (REMDESIVIR (EUA)) [Suspect]
     Active Substance: REMDESIVIR
     Indication: COVID-19
     Route: 042
     Dates: start: 2020, end: 20200630

REACTIONS (5)
  - Therapy interrupted [None]
  - General physical health deterioration [None]
  - Acute kidney injury [None]
  - Blood creatinine increased [None]
  - Haemodialysis [None]

NARRATIVE: CASE EVENT DATE: 20200330
